FAERS Safety Report 23656647 (Version 1)
Quarter: 2024Q1

REPORT INFORMATION
  Report Type: Spontaneous
  Country: US (occurrence: US)
  Receive Date: 20240321
  Receipt Date: 20240321
  Transmission Date: 20240410
  Serious: Yes (Other)
  Sender: FDA-Public Use
  Company Number: US-BEH-2024169881

PATIENT
  Sex: Male

DRUGS (2)
  1. HIZENTRA [Suspect]
     Active Substance: HUMAN IMMUNOGLOBULIN G
     Indication: Immunodeficiency common variable
     Dosage: 15 GRAM, QW
     Route: 058
     Dates: start: 201705
  2. HUMIRA [Concomitant]
     Active Substance: ADALIMUMAB
     Route: 065

REACTIONS (2)
  - Postoperative wound infection [Recovered/Resolved]
  - Surgery [Unknown]
